FAERS Safety Report 6089837-3 (Version None)
Quarter: 2009Q1

REPORT INFORMATION
  Report Type: 
  Country: None (occurrence: None)
  Receive Date: 20090224
  Receipt Date: 20081118
  Transmission Date: 20090719
  Serious: No
  Sender: FDA-Public Use
  Company Number: US-ABBOTT-08P-163-0488703-00

PATIENT
  Sex: Male
  Weight: 97.61 kg

DRUGS (6)
  1. SIMCOR [Suspect]
     Indication: BLOOD CHOLESTEROL INCREASED
     Route: 048
     Dates: start: 20081103, end: 20081107
  2. TELMISARTAN [Concomitant]
     Indication: HYPERTENSION
     Route: 048
  3. LOVAZA [Concomitant]
     Indication: BLOOD CHOLESTEROL INCREASED
     Dosage: UNKNOWN
     Route: 048
  4. DIPHENHYDRAMINE HCL [Concomitant]
     Indication: DRUG USE FOR UNKNOWN INDICATION
     Route: 048
  5. MORNIFLUMATE [Concomitant]
     Indication: DYSURIA
     Dosage: UNKNOWN
     Route: 048
  6. TIOTROPIUM BROMIDE [Concomitant]
     Indication: DRUG USE FOR UNKNOWN INDICATION
     Dosage: UNKNOWN
     Route: 055

REACTIONS (1)
  - HYPOAESTHESIA [None]
